FAERS Safety Report 5744219-6 (Version None)
Quarter: 2008Q2

REPORT INFORMATION
  Report Type: 
  Country: None (occurrence: None)
  Receive Date: 20080516
  Receipt Date: 20080516
  Transmission Date: 20081010
  Serious: Yes (Other)
  Sender: FDA-Public Use
  Company Number: None

PATIENT
  Age: 66 Year
  Sex: Female
  Weight: 86.1834 kg

DRUGS (2)
  1. VIVELLE-DOT [Suspect]
     Indication: HOT FLUSH
     Dosage: .05  2X A WEEK TOP
     Route: 061
     Dates: start: 20080101, end: 20080515
  2. VIVELLE-DOT [Suspect]
     Indication: INSOMNIA
     Dosage: .05  2X A WEEK TOP
     Route: 061
     Dates: start: 20080101, end: 20080515

REACTIONS (4)
  - ARTHRALGIA [None]
  - NO THERAPEUTIC RESPONSE [None]
  - PAIN IN EXTREMITY [None]
  - TENDONITIS [None]
